FAERS Safety Report 7852701-0 (Version None)
Quarter: 2011Q4

REPORT INFORMATION
  Report Type: 
  Country: None (occurrence: None)
  Receive Date: 20111026
  Receipt Date: 20111012
  Transmission Date: 20120403
  Serious: Yes (Hospitalization)
  Sender: FDA-Public Use
  Company Number: SE-CELGENEUS-150-21880-11101298

PATIENT
  Sex: Female

DRUGS (18)
  1. MORPHINE [Concomitant]
     Route: 065
     Dates: start: 20100722
  2. NOVORAPID [Concomitant]
     Dosage: 4500 IU (INTERNATIONAL UNIT)
     Route: 065
     Dates: start: 20110209
  3. DEXAMETHASONE [Suspect]
     Indication: MULTIPLE MYELOMA
     Dosage: 40 MILLIGRAM
     Route: 048
  4. BACTRIM DS [Concomitant]
     Dosage: 2 TABLET
     Route: 065
     Dates: start: 20110405
  5. DICLOFENAC POTASSIUM [Concomitant]
     Route: 065
     Dates: start: 20100722
  6. INNOHEP [Concomitant]
     Dosage: 4500 IU (INTERNATIONAL UNIT)
     Route: 065
     Dates: start: 20110209
  7. SPIRONOLACTONE [Concomitant]
     Dosage: 25 MILLIGRAM
     Route: 065
     Dates: start: 20110506, end: 20111010
  8. FUROSEMIDE [Concomitant]
     Indication: HYPERKALAEMIA
     Dosage: 80 MILLIGRAM
     Route: 065
     Dates: start: 20101229
  9. ENALAPRIL MALEATE [Concomitant]
     Dosage: 20 MILLIGRAM
     Route: 065
     Dates: start: 20101013, end: 20111010
  10. CALCIMAGON D3 [Concomitant]
     Dosage: 500 MILLIGRAM
     Route: 065
     Dates: start: 20110405
  11. REVLIMID [Suspect]
     Indication: MULTIPLE MYELOMA
     Dosage: 25 MILLIGRAM
     Route: 048
  12. REVLIMID [Suspect]
     Dosage: 15 MILLIGRAM
     Route: 048
     Dates: start: 20110919, end: 20111010
  13. DEXAMETHASONE [Suspect]
     Dosage: 20 MILLIGRAM
     Route: 048
     Dates: start: 20110919, end: 20111010
  14. IMDUR [Concomitant]
     Dosage: 60 MILLIGRAM
     Route: 065
     Dates: start: 20070906
  15. NITROMEX [Concomitant]
     Route: 065
     Dates: start: 20090101
  16. ATENOLOL [Concomitant]
     Dosage: 25 MILLIGRAM
     Route: 065
     Dates: start: 20070906
  17. AMLODIPINE [Concomitant]
     Dosage: 10 MILLIGRAM
     Route: 065
     Dates: start: 20090305
  18. FUROSEMIDE [Concomitant]
     Route: 041
     Dates: start: 20111011

REACTIONS (2)
  - HYPERKALAEMIA [None]
  - BLOOD CREATININE INCREASED [None]
